FAERS Safety Report 4343481-4 (Version None)
Quarter: 2004Q2

REPORT INFORMATION
  Report Type: 
  Country: None (occurrence: None)
  Receive Date: 20040419
  Receipt Date: 20040402
  Transmission Date: 20050107
  Serious: Yes (Other)
  Sender: FDA-Public Use
  Company Number: A-US2004-05409

PATIENT
  Age: 9 Year
  Sex: Female
  Weight: 29.9828 kg

DRUGS (7)
  1. TRACLEER [Suspect]
     Indication: PULMONARY HYPERTENSION
     Dosage: 31.25 MG, BID, ORAL
     Route: 048
     Dates: start: 20040203, end: 20040224
  2. COUMADIN [Concomitant]
  3. BACTRIM (SULFAMETHAXOLE, TRIMETHOPRIM) [Concomitant]
  4. (ASCORBIC ACID, ERGOCALCIFEROL, FOLIC ACID, NICOTINAMIDE, PANTHENOL, R [Concomitant]
  5. PEPCID [Concomitant]
  6. PREDNISONE [Concomitant]
  7. CYTOXAN [Concomitant]

REACTIONS (9)
  - ABDOMINAL PAIN [None]
  - ALANINE AMINOTRANSFERASE INCREASED [None]
  - ASPARTATE AMINOTRANSFERASE INCREASED [None]
  - BLOOD CULTURE POSITIVE [None]
  - DECREASED APPETITE [None]
  - DIARRHOEA [None]
  - LIVER FUNCTION TEST ABNORMAL [None]
  - STAPHYLOCOCCAL INFECTION [None]
  - VOMITING [None]
